FAERS Safety Report 5897832-X (Version None)
Quarter: 2008Q3

REPORT INFORMATION
  Report Type: 
  Country: None (occurrence: None)
  Receive Date: 20080924
  Receipt Date: 20080924
  Transmission Date: 20090109
  Serious: No
  Sender: FDA-Public Use
  Company Number: None

PATIENT

DRUGS (2)
  1. ATORVASTATIN CALCIUM [Suspect]
  2. OMEPRAZOLE [Suspect]

REACTIONS (2)
  - DRUG INTERACTION [None]
  - MYALGIA [None]
